FAERS Safety Report 8442889-5 (Version None)
Quarter: 2012Q2

REPORT INFORMATION
  Report Type: 
  Country: None (occurrence: None)
  Receive Date: 20120615
  Receipt Date: 20120601
  Transmission Date: 20120825
  Serious: Yes (Other)
  Sender: FDA-Public Use
  Company Number: FR-CUBIST-2012S1000402

PATIENT
  Age: 52 Year
  Sex: Male

DRUGS (7)
  1. ZANTAC [Suspect]
     Indication: PRODUCT USED FOR UNKNOWN INDICATION
     Dosage: DOSE UNIT:U
     Dates: start: 20120414, end: 20120424
  2. ZANTAC [Suspect]
     Dosage: DOSE UNIT:U
     Dates: start: 20120429
  3. SPIRONOLACTONE [Concomitant]
     Indication: PRODUCT USED FOR UNKNOWN INDICATION
     Dosage: DOSE UNIT:U
  4. ALLOPURINOL [Concomitant]
     Indication: PRODUCT USED FOR UNKNOWN INDICATION
     Dosage: DOSE UNIT:U
  5. CUBICIN [Suspect]
     Indication: PRODUCT USED FOR UNKNOWN INDICATION
     Dosage: DOSE UNIT:U
     Route: 042
     Dates: start: 20120419, end: 20120423
  6. FUROSEMIDE [Concomitant]
     Indication: PRODUCT USED FOR UNKNOWN INDICATION
     Dosage: DOSE UNIT:U
  7. AMIODARONE HYDROCHLORIDE [Suspect]
     Indication: PRODUCT USED FOR UNKNOWN INDICATION
     Dosage: DOSE UNIT:U

REACTIONS (8)
  - TREMOR [None]
  - RENAL FAILURE [None]
  - PULMONARY SEPSIS [None]
  - DRUG ERUPTION [None]
  - SEPTIC SHOCK [None]
  - HYPERAMMONAEMIA [None]
  - INFECTIOUS PERITONITIS [None]
  - ENDOCARDITIS [None]
